FAERS Safety Report 12866480 (Version 1)
Quarter: 2016Q4

REPORT INFORMATION
  Report Type: Spontaneous
  Country: US (occurrence: US)
  Receive Date: 20161020
  Receipt Date: 20161020
  Transmission Date: 20170207
  Serious: Yes (Other)
  Sender: FDA-Public Use
  Company Number: US-SA-2016SA108489

PATIENT
  Age: 55 Year
  Sex: Female

DRUGS (11)
  1. CITALOPRAM [Concomitant]
     Active Substance: CITALOPRAM HYDROBROMIDE
  2. MELOXICAM. [Concomitant]
     Active Substance: MELOXICAM
  3. SERZONE [Concomitant]
     Active Substance: NEFAZODONE HYDROCHLORIDE
  4. ADVAIR HFA [Concomitant]
     Active Substance: FLUTICASONE PROPIONATE\SALMETEROL XINAFOATE
  5. NEFAZODONE [Concomitant]
     Active Substance: NEFAZODONE
  6. GABAPENTIN. [Concomitant]
     Active Substance: GABAPENTIN
  7. LISINOPRIL. [Concomitant]
     Active Substance: LISINOPRIL
  8. AUBAGIO [Suspect]
     Active Substance: TERIFLUNOMIDE
     Indication: MULTIPLE SCLEROSIS
     Route: 048
     Dates: start: 20151014
  9. BACLOFEN. [Concomitant]
     Active Substance: BACLOFEN
  10. SIMVASTATIN. [Concomitant]
     Active Substance: SIMVASTATIN
  11. HYOSCYAMINE. [Concomitant]
     Active Substance: HYOSCYAMINE

REACTIONS (4)
  - Multiple sclerosis relapse [Unknown]
  - Localised infection [Unknown]
  - Hypoaesthesia [Unknown]
  - Neuropathy peripheral [Unknown]

NARRATIVE: CASE EVENT DATE: 20160722
